FAERS Safety Report 23405746 (Version 1)
Quarter: 2024Q1

REPORT INFORMATION
  Report Type: Spontaneous
  Country: US (occurrence: None)
  Receive Date: 20240113
  Receipt Date: 20240113
  Transmission Date: 20240410
  Serious: No
  Sender: FDA-Public Use
  Company Number: None

PATIENT
  Age: 78 Year
  Sex: Female

DRUGS (2)
  1. FLUOCINONIDE [Suspect]
     Active Substance: FLUOCINONIDE
     Indication: Pruritus
     Dosage: OTHER QUANTITY : 1 APPLY THIN FILM;?FREQUENCY : TWICE A DAY;?
     Route: 061
  2. FLONASE [Suspect]
     Active Substance: FLUTICASONE PROPIONATE

REACTIONS (5)
  - Product packaging confusion [None]
  - Product name confusion [None]
  - Wrong product administered [None]
  - Incorrect route of product administration [None]
  - Intercepted product administration error [None]

NARRATIVE: CASE EVENT DATE: 20240113
